FAERS Safety Report 7617278-3 (Version None)
Quarter: 2011Q3

REPORT INFORMATION
  Report Type: 
  Country: None (occurrence: None)
  Receive Date: 20110718
  Receipt Date: 20110706
  Transmission Date: 20111222
  Serious: Yes (Hospitalization)
  Sender: FDA-Public Use
  Company Number: US-ELI_LILLY_AND_COMPANY-US201007007091

PATIENT
  Age: 64 Year
  Sex: Female
  Weight: 56.236 kg

DRUGS (32)
  1. SINGULAIR [Concomitant]
     Dosage: 10 MG, QD
  2. SYMBICORT [Concomitant]
     Dosage: UNK, BID
  3. ROBITUSSIN DM                      /00288801/ [Concomitant]
     Dosage: UNK, Q4HRS PRN
  4. OXYGEN [Concomitant]
     Dosage: 2 L, MIN
  5. VITAMIN D [Concomitant]
     Dosage: UNK UNK, MONTHLY (1/M)
  6. GLIPIZIDE [Concomitant]
     Dosage: 2.5 MG, QD
  7. FERROUS SULFATE TAB [Concomitant]
     Dosage: UNK, BID
  8. SERTRALINE HYDROCHLORIDE [Concomitant]
     Dosage: 50 MG, QD
  9. MAALOX [Concomitant]
     Dosage: UNK, Q4HRS PRN
  10. ZOLOFT [Concomitant]
  11. FORTEO [Suspect]
     Indication: OSTEOPOROSIS
     Dosage: 20 UG, DAILY (1/D)
     Route: 058
     Dates: start: 20100507
  12. FORTEO [Suspect]
     Dosage: 20 UG, DAILY (1/D)
     Route: 058
  13. SPIRIVA [Concomitant]
     Dosage: 18 UG, QD
  14. PREDNISONE [Concomitant]
  15. LORATADINE [Concomitant]
     Dosage: 10 MG, QD
  16. IMODIUM MULTI-SYMPTOM RELIEF [Concomitant]
     Dosage: UNK, PRN
  17. VENTOLIN [Concomitant]
     Dosage: UNK, PRN
  18. DUONEB [Concomitant]
     Dosage: 5 DF, DAILY AS NEEDED
  19. MOM [Concomitant]
     Dosage: UNK, Q4HRS PRN
  20. ATROVENT [Concomitant]
  21. BACITRACIN [Concomitant]
     Dosage: UNK, BID AS NEEDED
  22. NOVOLOG [Concomitant]
  23. TUMS                               /00108001/ [Concomitant]
     Dosage: 2 DF, Q4HRS PRN
  24. XOPENEX [Concomitant]
  25. PLAVIX [Concomitant]
     Dosage: 75 MG, QD
  26. MUCINEX [Concomitant]
     Dosage: 600 MG, BID
  27. TYLENOL (CAPLET) [Concomitant]
     Dosage: 2 DF, Q4HRS PRN
  28. NYSTATIN [Concomitant]
  29. TENORMIN [Concomitant]
     Dosage: 12.5 MG, QD
  30. CRESTOR [Concomitant]
     Dosage: 5 MG, QD
  31. NEXIUM [Concomitant]
     Dosage: 40 MG, QD
  32. XANAX [Concomitant]
     Dosage: 0.25 MG, BID AS NEEDED

REACTIONS (3)
  - INJECTION SITE PAIN [None]
  - CHRONIC OBSTRUCTIVE PULMONARY DISEASE [None]
  - PNEUMONIA [None]
